FAERS Safety Report 5007204-8 (Version None)
Quarter: 2006Q1

REPORT INFORMATION
  Report Type: 
  Country: None (occurrence: None)
  Receive Date: 20060320
  Receipt Date: 20050428
  Transmission Date: 20060701
  Serious: Yes (Other)
  Sender: FDA-Public Use
  Company Number: 2005-05-0021

PATIENT
  Sex: Male

DRUGS (2)
  1. PEG-INTRON [Suspect]
     Indication: HEPATITIS C
     Dates: start: 20050401
  2. RIBAVIRIN [Suspect]
     Indication: HEPATITIS C
     Dosage: ORAL
     Route: 048
     Dates: start: 20050401

REACTIONS (4)
  - AGGRESSION [None]
  - DRUG DEPENDENCE [None]
  - INSOMNIA [None]
  - IRRITABILITY [None]
